FAERS Safety Report 9653811 (Version 2)
Quarter: 2013Q4

REPORT INFORMATION
  Report Type: Spontaneous
  Country: US (occurrence: None)
  Receive Date: 20131028
  Receipt Date: 20131113
  Transmission Date: 20140711
  Serious: Yes (Other)
  Sender: FDA-Public Use
  Company Number: 201310027

PATIENT
  Sex: Male

DRUGS (1)
  1. TESTIM [Suspect]

REACTIONS (2)
  - Osteonecrosis of jaw [None]
  - Osteonecrosis [None]
